FAERS Safety Report 4706450-8 (Version None)
Quarter: 2005Q3

REPORT INFORMATION
  Report Type: 
  Country: None (occurrence: None)
  Receive Date: 20050705
  Receipt Date: 20050117
  Transmission Date: 20060218
  Serious: Yes (Other)
  Sender: FDA-Public Use
  Company Number: US-GLAXOSMITHKLINE-A0540949A

PATIENT
  Age: 40 Year
  Sex: Male

DRUGS (4)
  1. TRIZIVIR [Suspect]
     Indication: HIV INFECTION
     Dosage: 1TAB TWICE PER DAY
     Route: 048
     Dates: start: 20021101
  2. VIRAMUNE [Concomitant]
  3. ALPRAZOLAM [Concomitant]
  4. AMBIEN [Concomitant]

REACTIONS (5)
  - ASTHENOPIA [None]
  - DIARRHOEA [None]
  - FATIGUE [None]
  - INTRACRANIAL PRESSURE INCREASED [None]
  - MYALGIA [None]
